FAERS Safety Report 6538704-7 (Version None)
Quarter: 2010Q1

REPORT INFORMATION
  Report Type: 
  Country: None (occurrence: None)
  Receive Date: 20100113
  Receipt Date: 20100113
  Transmission Date: 20100710
  Serious: Yes (Disabling, Other)
  Sender: FDA-Public Use
  Company Number: None

PATIENT
  Sex: Male
  Weight: 81.6475 kg

DRUGS (4)
  1. MELOXICAM [Suspect]
     Indication: BACK PAIN
     Dosage: 1 - PER DAY
     Dates: start: 20091125
  2. MELOXICAM [Suspect]
     Indication: OSTEOARTHRITIS
     Dosage: 1 - PER DAY
     Dates: start: 20091125
  3. MELOXICAM [Suspect]
     Indication: BACK PAIN
     Dosage: 1 - PER DAY
     Dates: start: 20091126
  4. MELOXICAM [Suspect]
     Indication: OSTEOARTHRITIS
     Dosage: 1 - PER DAY
     Dates: start: 20091126

REACTIONS (10)
  - ABDOMINAL PAIN UPPER [None]
  - CONSTIPATION [None]
  - DYSPNOEA [None]
  - FATIGUE [None]
  - FLATULENCE [None]
  - GROIN PAIN [None]
  - HERNIA [None]
  - MOOD ALTERED [None]
  - PRURITUS [None]
  - VOMITING [None]
